FAERS Safety Report 5595137-8 (Version None)
Quarter: 2008Q1

REPORT INFORMATION
  Report Type: 
  Country: None (occurrence: None)
  Receive Date: 20080117
  Receipt Date: 20071221
  Transmission Date: 20080703
  Serious: No
  Sender: FDA-Public Use
  Company Number: US-BOEHRINGER INGELHEIM PHARMACEUTICALS, INC.-2008-BP-00018BP

PATIENT
  Sex: Female

DRUGS (8)
  1. SPIRIVA [Suspect]
     Indication: CHRONIC OBSTRUCTIVE PULMONARY DISEASE
     Route: 055
  2. SPIRIVA [Suspect]
     Indication: ASTHMA
  3. SPIRIVA [Suspect]
     Indication: EMPHYSEMA
  4. SPIRIVA [Suspect]
     Indication: DYSPNOEA
  5. ADVAIR DISKUS 100/50 [Suspect]
     Indication: ASTHMA
  6. SINGULAIR [Concomitant]
  7. COMBIVENT [Concomitant]
  8. THEOPHYLLINE [Concomitant]

REACTIONS (1)
  - VISUAL DISTURBANCE [None]
